FAERS Safety Report 9607273 (Version 4)
Quarter: 2014Q1

REPORT INFORMATION
  Report Type: Report from Study
  Country: CA (occurrence: CA)
  Receive Date: 20131009
  Receipt Date: 20140116
  Transmission Date: 20141002
  Serious: Yes (Hospitalization, Other)
  Sender: FDA-Public Use
  Company Number: CA-ROCHE-1014188

PATIENT
  Age: 55 Year
  Sex: Female
  Weight: 64 kg

DRUGS (14)
  1. ACTEMRA [Suspect]
     Indication: RHEUMATOID ARTHRITIS
     Route: 042
     Dates: start: 20110502
  2. ACTEMRA [Suspect]
     Route: 042
     Dates: start: 20110922
  3. ACTEMRA [Suspect]
     Route: 042
     Dates: start: 20110727
  4. ACTEMRA [Suspect]
     Route: 042
     Dates: start: 20110824
  5. ACTEMRA [Suspect]
     Route: 042
     Dates: start: 20110922
  6. ACTEMRA [Suspect]
     Route: 042
     Dates: start: 20111021
  7. EVISTA [Concomitant]
  8. METHOTREXATE [Concomitant]
     Route: 065
  9. VOLTAREN [Concomitant]
     Route: 065
  10. ACTONEL [Concomitant]
     Route: 065
  11. FOLIC ACID [Concomitant]
     Route: 065
  12. SYNTHROID [Concomitant]
     Route: 065
  13. CYMBALTA [Concomitant]
     Route: 065
  14. RALOXIFENE [Concomitant]

REACTIONS (17)
  - Fall [Unknown]
  - Head injury [Unknown]
  - Cerebrovascular accident [Unknown]
  - Cerebral haemorrhage [Unknown]
  - Cellulitis [Recovered/Resolved]
  - Spinal fracture [Recovering/Resolving]
  - Pain [Not Recovered/Not Resolved]
  - Paraesthesia [Not Recovered/Not Resolved]
  - Hypoaesthesia [Not Recovered/Not Resolved]
  - Throat irritation [Unknown]
  - Arthralgia [Unknown]
  - Arthralgia [Unknown]
  - Arthralgia [Unknown]
  - Neck pain [Not Recovered/Not Resolved]
  - Contusion [Recovered/Resolved]
  - Excoriation [Recovered/Resolved]
  - Joint swelling [Recovered/Resolved]
